FAERS Safety Report 9715058 (Version 1)
Quarter: 2013Q4

REPORT INFORMATION
  Report Type: Spontaneous
  Country: US (occurrence: US)
  Receive Date: 20131126
  Receipt Date: 20131126
  Transmission Date: 20140711
  Serious: No
  Sender: FDA-Public Use
  Company Number: US-NOVEN-13US007845

PATIENT
  Age: 38 Year
  Sex: Female

DRUGS (1)
  1. MINIVELLE [Suspect]
     Indication: OESTROGEN REPLACEMENT THERAPY
     Dosage: 0.075 MG, UNK
     Route: 062

REACTIONS (2)
  - Breast mass [Not Recovered/Not Resolved]
  - Drug prescribing error [Not Recovered/Not Resolved]
